FAERS Safety Report 6843558-5 (Version None)
Quarter: 2010Q3

REPORT INFORMATION
  Report Type: 
  Country: None (occurrence: None)
  Receive Date: 20100712
  Receipt Date: 20100615
  Transmission Date: 20110219
  Serious: Yes (Hospitalization, Other)
  Sender: FDA-Public Use
  Company Number: TNZFR200800120

PATIENT
  Age: 98 Year
  Sex: Male
  Weight: 59 kg

DRUGS (9)
  1. INNOHEP [Suspect]
     Indication: THROMBOSIS PROPHYLAXIS
     Dosage: 4500 IU (4500 IU, 1 D), SUBCUTANEOUS
     Route: 058
     Dates: start: 20080616, end: 20080627
  2. INNOHEP [Suspect]
  3. INNOHEP [Suspect]
  4. INNOHEP [Suspect]
  5. LOVENOX [Concomitant]
  6. VASTAREL (TRIMETAZIDINE HYDROCHLORIDE) [Concomitant]
  7. ACETAMINOPHEN [Concomitant]
  8. CIPROFLOXACIN [Concomitant]
  9. OMEPRAZOLE [Concomitant]

REACTIONS (4)
  - ANAEMIA [None]
  - BEDRIDDEN [None]
  - DEEP VEIN THROMBOSIS [None]
  - OFF LABEL USE [None]
